FAERS Safety Report 8264786-0 (Version None)
Quarter: 2012Q2

REPORT INFORMATION
  Report Type: 
  Country: None (occurrence: None)
  Receive Date: 20120406
  Receipt Date: 20120329
  Transmission Date: 20120825
  Serious: Yes (Other)
  Sender: FDA-Public Use
  Company Number: BR-JNJFOC-20120400166

PATIENT
  Age: 31 Year
  Sex: Female
  Weight: 47 kg

DRUGS (1)
  1. ORTHO EVRA [Suspect]
     Indication: CONTRACEPTION
     Route: 062
     Dates: start: 20111101

REACTIONS (4)
  - PRODUCT QUALITY ISSUE [None]
  - WRONG TECHNIQUE IN DRUG USAGE PROCESS [None]
  - NEPHROLITHIASIS [None]
  - INAPPROPRIATE SCHEDULE OF DRUG ADMINISTRATION [None]
